FAERS Safety Report 25981972 (Version 1)
Quarter: 2025Q4

REPORT INFORMATION
  Report Type: Spontaneous
  Country: EU (occurrence: EU)
  Receive Date: 20251031
  Receipt Date: 20251031
  Transmission Date: 20260118
  Serious: Yes (Hospitalization, Other)
  Sender: CELLTRION
  Company Number: None

PATIENT

DRUGS (3)
  1. BEVACIZUMAB [Suspect]
     Active Substance: BEVACIZUMAB
     Indication: Hepatic cancer
     Dosage: 1200 MG, CYCLICAL
     Route: 042
     Dates: start: 20240823, end: 20250822
  2. ATEZOLIZUMAB [Suspect]
     Active Substance: ATEZOLIZUMAB
     Indication: Hepatic cancer
     Dosage: 1100 MG, CYCLICAL
     Route: 042
     Dates: start: 20240823, end: 20250822
  3. ZOMETA [Suspect]
     Active Substance: ZOLEDRONIC ACID
     Indication: Metastatic bone disease prophylaxis
     Dosage: 4 MG, EVERY 1 MONTH
     Route: 042
     Dates: start: 20241227, end: 20250822

REACTIONS (2)
  - Acute kidney injury [Not Recovered/Not Resolved]
  - Intentional product use issue [Unknown]

NARRATIVE: CASE EVENT DATE: 20250731
